FAERS Safety Report 7958296-5 (Version None)
Quarter: 2011Q4

REPORT INFORMATION
  Report Type: 
  Country: None (occurrence: None)
  Receive Date: 20111205
  Receipt Date: 20111123
  Transmission Date: 20120403
  Serious: Yes (Hospitalization, Other)
  Sender: FDA-Public Use
  Company Number: CH-COVIDIEN/TYCO HEALTHCARE/MALLINCKRODT-T201102784

PATIENT
  Age: 25 Year
  Sex: Female

DRUGS (3)
  1. METHYLIN [Suspect]
     Indication: PRODUCT USED FOR UNKNOWN INDICATION
     Dosage: 320 MG
     Route: 048
  2. BENZODIAZEPINE DERIVATIVES [Suspect]
     Indication: PRODUCT USED FOR UNKNOWN INDICATION
     Dosage: UNK
  3. ALCOHOL [Suspect]
     Indication: PRODUCT USED FOR UNKNOWN INDICATION
     Dosage: UNK

REACTIONS (3)
  - PETIT MAL EPILEPSY [None]
  - TOXICITY TO VARIOUS AGENTS [None]
  - DRUG ABUSE [None]
